FAERS Safety Report 4703591-6 (Version None)
Quarter: 2005Q2

REPORT INFORMATION
  Report Type: 
  Country: None (occurrence: None)
  Receive Date: 20050208
  Receipt Date: 20050208
  Transmission Date: 20051028
  Serious: Yes (Other)
  Sender: FDA-Public Use
  Company Number: None

PATIENT
  Age: 45 Year
  Sex: Female
  Weight: 112.4921 kg

DRUGS (3)
  1. CLOZAPINE [Suspect]
     Indication: SCHIZOAFFECTIVE DISORDER
  2. GEODON [Concomitant]
  3. WELLBUTRIN SR [Concomitant]

REACTIONS (7)
  - ANXIETY [None]
  - DEPRESSED MOOD [None]
  - FEELING OF DESPAIR [None]
  - HYPERSOMNIA [None]
  - RELATIONSHIP BREAKDOWN [None]
  - SELF-INJURIOUS IDEATION [None]
  - THERAPEUTIC RESPONSE UNEXPECTED WITH DRUG SUBSTITUTION [None]
